FAERS Safety Report 8560178-5 (Version None)
Quarter: 2012Q3

REPORT INFORMATION
  Report Type: 
  Country: None (occurrence: None)
  Receive Date: 20120723
  Receipt Date: 20120711
  Transmission Date: 20120928
  Serious: Yes (Disabling)
  Sender: FDA-Public Use
  Company Number: AUR-APL-2012-03003

PATIENT
  Age: 75 Year
  Sex: Female
  Weight: 110 kg

DRUGS (6)
  1. L-THYROXINE 9LEVOTHYROXINE) [Concomitant]
  2. CARBAMAZEPINE [Suspect]
     Indication: EPILEPSY
     Dosage: 400 MG (200 MG, 2 IN 1 D), ORAL
     Route: 048
     Dates: start: 20050101
  3. LEVETIRACETAM [Suspect]
     Indication: EPILEPSY
     Dosage: 3 MG (1.5 MG, 2 IN 1 D), ORAL; 2.5 MG (1.25 MG,2 IN 1 D)
     Route: 048
     Dates: start: 20120101, end: 20120501
  4. LEVETIRACETAM [Suspect]
     Indication: EPILEPSY
     Dosage: 3 MG (1.5 MG, 2 IN 1 D), ORAL; 2.5 MG (1.25 MG,2 IN 1 D)
     Route: 048
     Dates: end: 20120101
  5. SIMVASTATIN [Concomitant]
  6. SULPIRIDE (SULPIRIDE) [Concomitant]

REACTIONS (2)
  - DRUG INTERACTION [None]
  - FATIGUE [None]
